FAERS Safety Report 9231842 (Version 1)
Quarter: 2013Q2

REPORT INFORMATION
  Report Type: Report from Study
  Country: US (occurrence: US)
  Receive Date: 20130415
  Receipt Date: 20130415
  Transmission Date: 20140414
  Serious: Yes (Other)
  Sender: FDA-Public Use
  Company Number: US-TEVA-392780USA

PATIENT
  Age: 15 Year
  Sex: Male

DRUGS (4)
  1. CLARAVIS [Suspect]
     Route: 048
     Dates: start: 20121224
  2. ZOLOFT [Concomitant]
  3. CLARITIN [Concomitant]
  4. FLONASE [Concomitant]

REACTIONS (3)
  - Self-injurious ideation [Unknown]
  - Mood altered [Unknown]
  - Emotional disorder [Unknown]
